FAERS Safety Report 7635260-7 (Version None)
Quarter: 2011Q3

REPORT INFORMATION
  Report Type: 
  Country: None (occurrence: None)
  Receive Date: 20110726
  Receipt Date: 20110712
  Transmission Date: 20111222
  Serious: Yes (Hospitalization, Other)
  Sender: FDA-Public Use
  Company Number: TR-RANBAXY-2011RR-46188

PATIENT
  Age: 34 Year
  Sex: Male

DRUGS (1)
  1. METFORMIN HCL [Suspect]
     Indication: SUICIDE ATTEMPT
     Dosage: 144500 MG, UNK
     Route: 048

REACTIONS (4)
  - RENAL FAILURE ACUTE [None]
  - HYPOGLYCAEMIA [None]
  - LACTIC ACIDOSIS [None]
  - INTENTIONAL OVERDOSE [None]
